FAERS Safety Report 7789105-5 (Version None)
Quarter: 2011Q3

REPORT INFORMATION
  Report Type: 
  Country: None (occurrence: None)
  Receive Date: 20110930
  Receipt Date: 20110920
  Transmission Date: 20111222
  Serious: Yes (Other)
  Sender: FDA-Public Use
  Company Number: JP-JNJFOC-20110909651

PATIENT
  Age: 72 Year
  Sex: Female

DRUGS (4)
  1. REMICADE [Suspect]
     Indication: RHEUMATOID VASCULITIS
     Route: 042
  2. GANCICLOVIR [Suspect]
     Indication: CYTOMEGALOVIRUS INFECTION
     Route: 065
  3. UNKNOWN ADRENAL HORMONE PREPARATIONS [Concomitant]
     Indication: RHEUMATOID VASCULITIS
     Route: 065
  4. METHOTREXATE [Suspect]
     Indication: RHEUMATOID VASCULITIS
     Route: 065

REACTIONS (3)
  - PERICARDITIS [None]
  - CYTOMEGALOVIRUS INFECTION [None]
  - PANCYTOPENIA [None]
